FAERS Safety Report 4666996-8 (Version None)
Quarter: 2005Q2

REPORT INFORMATION
  Report Type: 
  Country: None (occurrence: None)
  Receive Date: 20050518
  Receipt Date: 20050110
  Transmission Date: 20051028
  Serious: Yes (Other)
  Sender: FDA-Public Use
  Company Number: PHEH2004US13212

PATIENT
  Age: 32 Year
  Sex: Female

DRUGS (5)
  1. TEGRETOL-XR [Suspect]
     Indication: CONVULSION
     Dosage: 500 MG, BID, ORAL
     Route: 048
  2. NEURONTIN [Concomitant]
  3. FOLIC ACID [Concomitant]
  4. FLONASE [Concomitant]
  5. ASTELIN [Concomitant]

REACTIONS (7)
  - ABDOMINAL PAIN [None]
  - CONVULSION [None]
  - FEELING ABNORMAL [None]
  - GASTROENTERITIS VIRAL [None]
  - HEADACHE [None]
  - PYREXIA [None]
  - VOMITING [None]
